FAERS Safety Report 7371676-4 (Version None)
Quarter: 2011Q1

REPORT INFORMATION
  Report Type: 
  Country: None (occurrence: None)
  Receive Date: 20110323
  Receipt Date: 20110318
  Transmission Date: 20110831
  Serious: Yes (Hospitalization)
  Sender: FDA-Public Use
  Company Number: DL2011-0213

PATIENT
  Age: 28 Year
  Sex: Female

DRUGS (4)
  1. MIFEPREX [Suspect]
     Indication: ABORTION INDUCED
     Dosage: 200 MG, ORAL
     Route: 048
     Dates: start: 20090814
  2. DOXYCYCLINE [Concomitant]
  3. MISOPROSTOL [Suspect]
     Dosage: 800 MCG, BUCCAL, 400 MCG, VAGINAL
     Route: 002
     Dates: start: 20090815
  4. MISOPROSTOL [Suspect]
     Dosage: 800 MCG, BUCCAL, 400 MCG, VAGINAL
     Route: 002
     Dates: start: 20090924

REACTIONS (4)
  - VOMITING [None]
  - NAUSEA [None]
  - ANAEMIA [None]
  - MENORRHAGIA [None]
